FAERS Safety Report 8459149-9 (Version None)
Quarter: 2012Q2

REPORT INFORMATION
  Report Type: 
  Country: None (occurrence: None)
  Receive Date: 20120615
  Receipt Date: 20120601
  Transmission Date: 20120825
  Serious: Yes (Death)
  Sender: FDA-Public Use
  Company Number: JP-2012-15087

PATIENT
  Age: 86 Year
  Sex: Female
  Weight: 36 kg

DRUGS (5)
  1. SAMSCA [Suspect]
     Indication: FLUID RETENTION
     Dosage: 3.75 MG MILLIGRAM(S), QAM, ORAL
     Route: 048
     Dates: start: 20120417, end: 20120418
  2. MILRILA (MILRINONE) INJECTION [Concomitant]
  3. LASIX [Concomitant]
  4. BISOPROLOL FUMARATE [Concomitant]
  5. DIGOSIN (DIGOXIN) INJECTION [Concomitant]

REACTIONS (2)
  - VENTRICULAR FIBRILLATION [None]
  - VOLUME BLOOD DECREASED [None]
